FAERS Safety Report 9144375 (Version 4)
Quarter: 2013Q3

REPORT INFORMATION
  Report Type: Report from Study
  Country: DE (occurrence: DE)
  Receive Date: 20130306
  Receipt Date: 20130824
  Transmission Date: 20140515
  Serious: Yes (Death, Life-Threatening, Hospitalization)
  Sender: FDA-Public Use
  Company Number: DE-ROCHE-1196503

PATIENT
  Age: 77 Year
  Sex: Male
  Weight: 75 kg

DRUGS (1)
  1. METHOXY POLYETHYLENE GLYCOL-EPOETIN BETA [Suspect]
     Indication: NEPHROGENIC ANAEMIA
     Dosage: LAST DOSE PRIOR TO AE: 10/AUG/2012
     Route: 042
     Dates: start: 20111216

REACTIONS (10)
  - Bradycardia [Fatal]
  - Hyperkalaemia [Fatal]
  - Acidosis [Fatal]
  - Myocardial infarction [Fatal]
  - Hypotension [Unknown]
  - Peripheral ischaemia [Unknown]
  - Atrial flutter [Unknown]
  - Dyspnoea [Unknown]
  - Pneumonia [Unknown]
  - Vascular graft occlusion [Recovering/Resolving]
